FAERS Safety Report 6821288-3 (Version None)
Quarter: 2010Q3

REPORT INFORMATION
  Report Type: 
  Country: None (occurrence: None)
  Receive Date: 20100707
  Receipt Date: 20080725
  Transmission Date: 20110219
  Serious: No
  Sender: FDA-Public Use
  Company Number: US-PFIZER INC-2008062365

PATIENT
  Sex: Female

DRUGS (1)
  1. ZOLOFT [Suspect]
     Dates: start: 20080720

REACTIONS (4)
  - CONSTIPATION [None]
  - DIZZINESS [None]
  - MIDDLE INSOMNIA [None]
  - SOMNOLENCE [None]
